FAERS Safety Report 5120321-7 (Version None)
Quarter: 2006Q4

REPORT INFORMATION
  Report Type: 
  Country: None (occurrence: None)
  Receive Date: 20061002
  Receipt Date: 20061002
  Transmission Date: 20070319
  Serious: No
  Sender: FDA-Public Use
  Company Number: None

PATIENT
  Sex: Female
  Weight: 72.1219 kg

DRUGS (2)
  1. CLEAR EYES CONTACT LENS RELIEF ABBOTT LABS FOR PRESTIGE BRANDS [Suspect]
     Indication: DRY EYE
     Dosage: 2 TO 3 DROPS EACH 1 OPHTHALMIC
     Route: 047
     Dates: start: 20060913, end: 20060914
  2. CLEAR EYES CONTACT LENS RELIEF ABBOTT LABS FOR PRESTIGE BRANDS [Suspect]
     Indication: EYE IRRITATION
     Dosage: 2 TO 3 DROPS EACH 1 OPHTHALMIC
     Route: 047
     Dates: start: 20060913, end: 20060914

REACTIONS (3)
  - BURNING SENSATION [None]
  - ERYTHEMA [None]
  - HYPERSENSITIVITY [None]
